FAERS Safety Report 7987185-5 (Version None)
Quarter: 2011Q4

REPORT INFORMATION
  Report Type: 
  Country: None (occurrence: None)
  Receive Date: 20111216
  Receipt Date: 20111006
  Transmission Date: 20120403
  Serious: Yes (Other)
  Sender: FDA-Public Use
  Company Number: US-BRISTOL-MYERS SQUIBB COMPANY-16139578

PATIENT
  Age: 8 Year
  Sex: Male

DRUGS (1)
  1. ABILIFY [Suspect]
     Dates: start: 20111001

REACTIONS (4)
  - MALAISE [None]
  - PALPITATIONS [None]
  - VOMITING [None]
  - SOMNOLENCE [None]
